FAERS Safety Report 24213192 (Version 1)
Quarter: 2024Q3

REPORT INFORMATION
  Report Type: Spontaneous
  Country: US (occurrence: None)
  Receive Date: 20240814
  Receipt Date: 20240814
  Transmission Date: 20241016
  Serious: Yes (Hospitalization)
  Sender: Public
  Company Number: None

PATIENT
  Sex: Male

DRUGS (1)
  1. OJJAARA [Suspect]
     Active Substance: MOMELOTINIB DIHYDROCHLORIDE MONOHYDRATE
     Indication: Chronic lymphocytic leukaemia
     Dosage: 200 MG DAILY ORAL ?
     Route: 048
     Dates: start: 20240210

REACTIONS (1)
  - Hospitalisation [None]
